FAERS Safety Report 5249685-0 (Version None)
Quarter: 2007Q1

REPORT INFORMATION
  Report Type: 
  Country: None (occurrence: None)
  Receive Date: 20070228
  Receipt Date: 20061101
  Transmission Date: 20070707
  Serious: No
  Sender: FDA-Public Use
  Company Number: US-GLAXOSMITHKLINE-A0616119A

PATIENT
  Age: 61 Year
  Sex: Female
  Weight: 76.8 kg

DRUGS (9)
  1. IMITREX [Suspect]
     Indication: MIGRAINE
     Dosage: 6MG AS REQUIRED
     Route: 048
  2. LASIX [Concomitant]
  3. ALTACE [Concomitant]
  4. COREG [Concomitant]
  5. ACIPHEX [Concomitant]
  6. LEXAPRO [Concomitant]
  7. FOSAMAX [Concomitant]
  8. ASPIRIN [Concomitant]
  9. CALTRATE [Concomitant]

REACTIONS (4)
  - ERYTHEMA [None]
  - FLUSHING [None]
  - PHARMACEUTICAL PRODUCT COMPLAINT [None]
  - SWELLING [None]
